FAERS Safety Report 23825577 (Version 5)
Quarter: 2024Q3

REPORT INFORMATION
  Report Type: Spontaneous
  Country: IT (occurrence: IT)
  Receive Date: 20240507
  Receipt Date: 20240926
  Transmission Date: 20241017
  Serious: Yes (Life-Threatening, Hospitalization, Other)
  Sender: BRISTOL MYERS SQUIBB
  Company Number: IT-BRISTOL-MYERS SQUIBB COMPANY-2024-064307

PATIENT
  Age: 55 Year
  Sex: Female

DRUGS (1)
  1. LENALIDOMIDE [Suspect]
     Active Substance: LENALIDOMIDE
     Indication: Plasma cell myeloma
     Dates: start: 20230201, end: 20230217

REACTIONS (2)
  - Myocarditis [Recovering/Resolving]
  - Cardiogenic shock [Recovering/Resolving]
